FAERS Safety Report 25779070 (Version 1)
Quarter: 2025Q3

REPORT INFORMATION
  Report Type: Spontaneous
  Country: JP (occurrence: JP)
  Receive Date: 20250909
  Receipt Date: 20250909
  Transmission Date: 20251021
  Serious: Yes (Other)
  Sender: PFIZER
  Company Number: JP-PFIZER INC-202500176285

PATIENT

DRUGS (1)
  1. INLYTA [Suspect]
     Active Substance: AXITINIB

REACTIONS (1)
  - Renal impairment [Unknown]
